FAERS Safety Report 5644534-0 (Version None)
Quarter: 2008Q1

REPORT INFORMATION
  Report Type: 
  Country: None (occurrence: None)
  Receive Date: 20080229
  Receipt Date: 20070219
  Transmission Date: 20080703
  Serious: No
  Sender: FDA-Public Use
  Company Number: A0640145A

PATIENT
  Sex: Female

DRUGS (1)
  1. VALTREX [Suspect]
     Indication: DRUG USE FOR UNKNOWN INDICATION
     Route: 048
     Dates: start: 20060101

REACTIONS (4)
  - ASTHENIA [None]
  - GAIT DISTURBANCE [None]
  - OSTEOPENIA [None]
  - PAIN [None]
